FAERS Safety Report 15862896 (Version 1)
Quarter: 2019Q1

REPORT INFORMATION
  Report Type: Spontaneous
  Country: US (occurrence: US)
  Receive Date: 20190124
  Receipt Date: 20190124
  Transmission Date: 20190417
  Serious: Yes (Other)
  Sender: FDA-Public Use
  Company Number: US-PFIZER INC-2019032260

PATIENT
  Age: 41 Year
  Sex: Female

DRUGS (3)
  1. CYTARABINE. [Suspect]
     Active Substance: CYTARABINE
     Dosage: UNK
  2. IDARUBICIN HCL [Suspect]
     Active Substance: IDARUBICIN HYDROCHLORIDE
     Dosage: UNK
  3. RYDAPT [Suspect]
     Active Substance: MIDOSTAURIN
     Dosage: UNK (7+3+)

REACTIONS (2)
  - Retinal haemorrhage [Unknown]
  - Blindness [Unknown]
